FAERS Safety Report 8811148 (Version 5)
Quarter: 2016Q2

REPORT INFORMATION
  Report Type: Spontaneous
  Country: US (occurrence: US)
  Receive Date: 20120927
  Receipt Date: 20160602
  Transmission Date: 20160815
  Serious: Yes (Disabling)
  Sender: FDA-Public Use
  Company Number: US-ASTRAZENECA-2012SE74353

PATIENT
  Age: 58 Year
  Sex: Female
  Weight: 81.6 kg

DRUGS (36)
  1. MISOPROSTOL. [Concomitant]
     Active Substance: MISOPROSTOL
     Dosage: 200.0UG UNKNOWN
     Dates: start: 20060105
  2. MOBIC [Concomitant]
     Active Substance: MELOXICAM
     Dosage: 15.0MG UNKNOWN
     Dates: start: 20060208
  3. HYZAAR [Concomitant]
     Active Substance: HYDROCHLOROTHIAZIDE\LOSARTAN POTASSIUM
     Dosage: 50-12.5 MG
     Dates: start: 20060208
  4. DOCUSATE SODIUM. [Concomitant]
     Active Substance: DOCUSATE SODIUM
     Dosage: 100.0MG UNKNOWN
     Dates: start: 20060624
  5. ENALAPRIL MALEATE. [Concomitant]
     Active Substance: ENALAPRIL MALEATE
     Dosage: 10.0MG UNKNOWN
     Dates: start: 20060515
  6. IBUPROFEN. [Concomitant]
     Active Substance: IBUPROFEN
     Dosage: 400.0MG UNKNOWN
     Dates: start: 20081201
  7. CRESTOR [Suspect]
     Active Substance: ROSUVASTATIN CALCIUM
     Indication: BLOOD CHOLESTEROL INCREASED
     Dosage: 10.0MG UNKNOWN
     Route: 048
     Dates: start: 1996
  8. ATENOLOL. [Concomitant]
     Active Substance: ATENOLOL
     Indication: ARRHYTHMIA
     Dosage: 25.0MG UNKNOWN
     Dates: start: 20060814
  9. ALPRAZOLAM. [Concomitant]
     Active Substance: ALPRAZOLAM
     Dosage: 1.0MG UNKNOWN
     Dates: start: 20060323
  10. LEXAPRO [Concomitant]
     Active Substance: ESCITALOPRAM OXALATE
     Dosage: 20.0MG UNKNOWN
     Dates: start: 20070905
  11. PHENAZOPYRIDINE HCL [Concomitant]
     Active Substance: PHENAZOPYRIDINE HYDROCHLORIDE
     Dosage: 100.0MG UNKNOWN
     Dates: start: 20070915
  12. DICYCLOMINE [Concomitant]
     Active Substance: DICYCLOMINE HYDROCHLORIDE
     Dosage: 20.0MG UNKNOWN
     Dates: start: 20121103
  13. PSEUDOEPHEDRINE [Concomitant]
     Active Substance: PSEUDOEPHEDRINE
     Dosage: 30.0MG UNKNOWN
     Dates: start: 20060918
  14. TRIAMTERENE AND HYDROCHLOROTHIAZIDE [Concomitant]
     Active Substance: HYDROCHLOROTHIAZIDE\TRIAMTERENE
     Dosage: 50-25 MG
     Dates: start: 20080912
  15. BACLOFEN. [Concomitant]
     Active Substance: BACLOFEN
     Dosage: 10.0MG UNKNOWN
     Dates: start: 20101012
  16. GLIMEPIRIDE. [Concomitant]
     Active Substance: GLIMEPIRIDE
     Dosage: 4.0MG UNKNOWN
     Dates: start: 20110203
  17. TRAMADOL. [Concomitant]
     Active Substance: TRAMADOL
     Dosage: 50.0MG UNKNOWN
     Dates: start: 20110921
  18. ZOLOFT [Concomitant]
     Active Substance: SERTRALINE HYDROCHLORIDE
     Dosage: 100.0MG UNKNOWN
     Dates: start: 20060208
  19. NEXIUM [Concomitant]
     Active Substance: ESOMEPRAZOLE MAGNESIUM
     Dosage: 40.0MG UNKNOWN
     Dates: start: 20060404
  20. FAMOTIDINE. [Concomitant]
     Active Substance: FAMOTIDINE
     Dosage: 400.0MG UNKNOWN
     Dates: start: 20071009
  21. OXYBUTYNIN [Concomitant]
     Active Substance: OXYBUTYNIN
     Dosage: 10.0MG UNKNOWN
     Dates: start: 20080619
  22. ATENOLOL. [Concomitant]
     Active Substance: ATENOLOL
     Indication: BLOOD PRESSURE MEASUREMENT
     Dosage: 25.0MG UNKNOWN
     Dates: start: 20060814
  23. LEVAQUIN [Concomitant]
     Active Substance: LEVOFLOXACIN
     Dosage: 250.0MG UNKNOWN
     Dates: start: 20060224
  24. AVANDARYL [Concomitant]
     Active Substance: GLIMEPIRIDE\ROSIGLITAZONE MALEATE
     Dosage: 4-2 MG
     Dates: start: 20061103
  25. PHENAZOPYRIDINE. [Concomitant]
     Active Substance: PHENAZOPYRIDINE
     Dosage: 100.0MG UNKNOWN
     Dates: start: 20060224
  26. DONNATAL [Concomitant]
     Active Substance: ATROPINE SULFATE\HYOSCYAMINE SULFATE\PHENOBARBITAL\SCOPOLAMINE HYDROBROMIDE
     Dosage: 16.2MG UNKNOWN
     Route: 048
     Dates: start: 20091103
  27. CRESTOR [Suspect]
     Active Substance: ROSUVASTATIN CALCIUM
     Indication: BLOOD CHOLESTEROL INCREASED
     Dosage: 10.0MG UNKNOWN
     Route: 048
     Dates: start: 20061103
  28. DICLOFENAC SODIUM. [Concomitant]
     Active Substance: DICLOFENAC SODIUM
     Dosage: 75.0MG UNKNOWN
     Dates: start: 20060105
  29. CELEBREX [Concomitant]
     Active Substance: CELECOXIB
     Dosage: 200.0MG UNKNOWN
     Dates: start: 20060105
  30. ABILIFY [Concomitant]
     Active Substance: ARIPIPRAZOLE
     Dosage: 10.0MG UNKNOWN
     Dates: start: 20060208
  31. DETROL [Concomitant]
     Active Substance: TOLTERODINE TARTRATE
     Dosage: 4.0MG UNKNOWN
     Dates: start: 20060413
  32. SEROQUEL [Concomitant]
     Active Substance: QUETIAPINE FUMARATE
     Dosage: 200.0MG UNKNOWN
     Dates: start: 20061103
  33. MECLIZINE [Concomitant]
     Active Substance: MECLIZINE HYDROCHLORIDE
     Dosage: 25.0MG UNKNOWN
     Dates: start: 20070109
  34. TYLENOL [Concomitant]
     Active Substance: ACETAMINOPHEN
     Dosage: 500.0MG UNKNOWN
     Dates: start: 20060323
  35. LIPITOR [Concomitant]
     Active Substance: ATORVASTATIN CALCIUM
     Dosage: 10.0MG UNKNOWN
     Dates: start: 20060105
  36. RISPERDAL [Concomitant]
     Active Substance: RISPERIDONE
     Dosage: 1.0MG UNKNOWN
     Dates: start: 20060208

REACTIONS (5)
  - Hypertensive heart disease [Unknown]
  - Blood triglycerides increased [Unknown]
  - Diabetes mellitus [Not Recovered/Not Resolved]
  - Hypertension [Not Recovered/Not Resolved]
  - Arrhythmia [Unknown]

NARRATIVE: CASE EVENT DATE: 1996
